FAERS Safety Report 7668760-4 (Version None)
Quarter: 2011Q3

REPORT INFORMATION
  Report Type: 
  Country: None (occurrence: None)
  Receive Date: 20110808
  Receipt Date: 20110804
  Transmission Date: 20111222
  Serious: Yes (Death)
  Sender: FDA-Public Use
  Company Number: JP-PFIZER INC-2011179873

PATIENT
  Age: 96 Year
  Sex: Male

DRUGS (1)
  1. ZOSYN [Suspect]
     Dosage: 9 G/DAY
     Route: 041
     Dates: start: 20110114

REACTIONS (1)
  - DEATH [None]
